FAERS Safety Report 14313584 (Version 4)
Quarter: 2018Q1

REPORT INFORMATION
  Report Type: Spontaneous
  Country: DE (occurrence: DE)
  Receive Date: 20171221
  Receipt Date: 20180112
  Transmission Date: 20180509
  Serious: Yes (Life-Threatening, Other)
  Sender: FDA-Public Use
  Company Number: DE-ASTRAZENECA-2017SF17840

PATIENT
  Age: 55 Year
  Sex: Male

DRUGS (8)
  1. PANTOPRAZOLE [Suspect]
     Active Substance: PANTOPRAZOLE
     Indication: NASOPHARYNGITIS
     Dosage: 5.0MG UNKNOWN
     Route: 048
  2. TILIDIN [Concomitant]
     Active Substance: NALOXONE HYDROCHLORIDE\TILIDINE HYDROCHLORIDE
     Indication: NASOPHARYNGITIS
     Route: 065
  3. PANTOPRAZOLE [Suspect]
     Active Substance: PANTOPRAZOLE
     Indication: NASOPHARYNGITIS
     Dosage: 2.0MG UNKNOWN
     Route: 048
  4. GRIPPOSTAD C [Concomitant]
     Indication: NASOPHARYNGITIS
     Route: 065
     Dates: start: 201501
  5. PANTOPRAZOLE [Suspect]
     Active Substance: PANTOPRAZOLE
     Indication: NASOPHARYNGITIS
     Dosage: 0.2MG UNKNOWN
     Route: 048
     Dates: start: 201501
  6. PANTOPRAZOLE [Suspect]
     Active Substance: PANTOPRAZOLE
     Indication: NASOPHARYNGITIS
     Dosage: UNKNOWN UNKNOWN
     Route: 048
  7. OMEPRAZOLE MAGNESIUM. [Suspect]
     Active Substance: OMEPRAZOLE MAGNESIUM
     Indication: NASOPHARYNGITIS
     Dosage: TOOK GASTRO-RESISTANT COATED TABLET
     Route: 048
     Dates: start: 201501
  8. TILIDIN [Concomitant]
     Active Substance: NALOXONE HYDROCHLORIDE\TILIDINE HYDROCHLORIDE
     Indication: NASOPHARYNGITIS
     Route: 065
     Dates: start: 201501

REACTIONS (10)
  - Dyspnoea [Recovered/Resolved]
  - Pruritus [Unknown]
  - Pruritus generalised [Recovered/Resolved]
  - Cardiovascular disorder [Recovered/Resolved]
  - Type I hypersensitivity [Recovered/Resolved]
  - Skin lesion [Recovered/Resolved]
  - Headache [Recovered/Resolved]
  - Nausea [Recovered/Resolved]
  - Rash pruritic [Recovered/Resolved]
  - Cold sweat [Recovered/Resolved]

NARRATIVE: CASE EVENT DATE: 201501
